FAERS Safety Report 10975165 (Version 3)
Quarter: 2016Q1

REPORT INFORMATION
  Report Type: Report from Study
  Country: US (occurrence: US)
  Receive Date: 20150401
  Receipt Date: 20160302
  Transmission Date: 20160525
  Serious: Yes (Other)
  Sender: FDA-Public Use
  Company Number: US-SA-2015SA039613

PATIENT
  Age: 69 Year
  Sex: Female

DRUGS (2)
  1. LANTUS [Suspect]
     Active Substance: INSULIN GLARGINE
     Indication: DIABETES MELLITUS
     Dosage: DOSE:55 UNIT(S)
     Route: 065
  2. NOVOLOG [Concomitant]
     Active Substance: INSULIN ASPART

REACTIONS (10)
  - Intestinal operation [Unknown]
  - Cough [Not Recovered/Not Resolved]
  - Renal disorder [Not Recovered/Not Resolved]
  - Ammonia abnormal [Unknown]
  - Hip fracture [Not Recovered/Not Resolved]
  - Gait disturbance [Not Recovered/Not Resolved]
  - Malaise [Unknown]
  - Uterine cancer [Recovered/Resolved]
  - Cervix carcinoma [Recovered/Resolved]
  - Headache [Unknown]

NARRATIVE: CASE EVENT DATE: 2011
